FAERS Safety Report 9288139 (Version 1)
Quarter: 2013Q2

REPORT INFORMATION
  Report Type: Spontaneous
  Country: BR (occurrence: BR)
  Receive Date: 20130514
  Receipt Date: 20130514
  Transmission Date: 20140414
  Serious: Yes (Other)
  Sender: FDA-Public Use
  Company Number: BR-JNJFOC-20130502885

PATIENT
  Age: 88 Year
  Sex: Female
  Weight: 75 kg

DRUGS (4)
  1. TYLEX [Suspect]
     Indication: PAIN
     Route: 065
     Dates: start: 20130501
  2. PROPRANOLOL [Concomitant]
     Indication: HYPERTENSION
     Route: 065
  3. HYDROCHLOROTHIAZIDE [Concomitant]
     Indication: HYPERTENSION
     Route: 065
  4. DIPYRONE [Concomitant]
     Indication: PAIN
     Route: 065

REACTIONS (2)
  - General physical health deterioration [Unknown]
  - Somnolence [Not Recovered/Not Resolved]
